FAERS Safety Report 4943460-X (Version None)
Quarter: 2006Q1

REPORT INFORMATION
  Report Type: 
  Country: None (occurrence: None)
  Receive Date: 20060313
  Receipt Date: 20060313
  Transmission Date: 20060701
  Serious: Yes (Other)
  Sender: FDA-Public Use
  Company Number: None

PATIENT
  Age: 25 Year
  Sex: Male
  Weight: 65.318 kg

DRUGS (1)
  1. ANAFRANIL [Suspect]
     Indication: OBSESSIVE-COMPULSIVE DISORDER
     Dosage: 25MG  ONE - TWO PO  Q HS
     Route: 048
     Dates: start: 20051201

REACTIONS (2)
  - PHARMACEUTICAL PRODUCT COMPLAINT [None]
  - TESTICULAR PAIN [None]
